FAERS Safety Report 6881307-5 (Version None)
Quarter: 2010Q2

REPORT INFORMATION
  Report Type: 
  Country: None (occurrence: None)
  Receive Date: 20100630
  Receipt Date: 20100616
  Transmission Date: 20101027
  Serious: No
  Sender: FDA-Public Use
  Company Number: 2010-00480

PATIENT
  Age: 72 Year
  Sex: Male
  Weight: 117.9352 kg

DRUGS (5)
  1. ZICAM COLD REMEDY GEL SWABS [Suspect]
     Dosage: QD-BID, 3-4 DAYS
     Dates: start: 20090101
  2. ATENOLOL [Concomitant]
  3. TERAZOSIN HCL [Concomitant]
  4. SYNTHROID [Concomitant]
  5. MULTI-VITAMIN [Concomitant]

REACTIONS (1)
  - ANOSMIA [None]
